FAERS Safety Report 6636863-9 (Version None)
Quarter: 2010Q1

REPORT INFORMATION
  Report Type: 
  Country: None (occurrence: None)
  Receive Date: 20100316
  Receipt Date: 20100310
  Transmission Date: 20100710
  Serious: Yes (Other)
  Sender: FDA-Public Use
  Company Number: CH-WYE-G05721310

PATIENT
  Age: 0 Day
  Sex: Female

DRUGS (2)
  1. EFFEXOR [Suspect]
     Indication: DEPRESSION
     Dosage: DURING THE WHOLE PREGNANCY, 300 MG DAILY
     Route: 064
  2. LAMICTAL CD [Suspect]
     Indication: DEPRESSION
     Dosage: STARTE ABOUT AT THE 5TH WEEK OF PREGNANCY, 100 MG DAILY, WITHDRAWN ON AN UNSPECIFIED DATE IN 2009.
     Route: 064

REACTIONS (2)
  - APGAR SCORE LOW [None]
  - PREMATURE BABY [None]
